FAERS Safety Report 10676526 (Version 10)
Quarter: 2015Q2

REPORT INFORMATION
  Report Type: Report from Study
  Country: CA (occurrence: CA)
  Receive Date: 20141226
  Receipt Date: 20150629
  Transmission Date: 20150821
  Serious: Yes (Death, Hospitalization, Other)
  Sender: FDA-Public Use
  Company Number: PHHY2012CA020484

PATIENT
  Age: 62 Year
  Sex: Male

DRUGS (6)
  1. SANDOSTATIN LAR DEPOT [Suspect]
     Active Substance: OCTREOTIDE ACETATE
     Dosage: 20 MG, ONCE IN EVERY 3 WEEKS
     Route: 030
  2. BIAXIN [Concomitant]
     Active Substance: CLARITHROMYCIN
     Indication: PRODUCT USED FOR UNKNOWN INDICATION
     Route: 065
  3. PREDNISONE. [Concomitant]
     Active Substance: PREDNISONE
     Indication: PRODUCT USED FOR UNKNOWN INDICATION
     Dosage: 50 MG, QD
     Route: 048
     Dates: start: 20140628
  4. SANDOSTATIN LAR DEPOT [Suspect]
     Active Substance: OCTREOTIDE ACETATE
     Indication: CARCINOID TUMOUR OF THE SMALL BOWEL
     Dosage: 20 MG, QMO
     Route: 030
     Dates: start: 20120109
  5. ALTACE [Concomitant]
     Active Substance: RAMIPRIL
     Indication: PRODUCT USED FOR UNKNOWN INDICATION
     Route: 065
  6. SANDOSTATIN LAR DEPOT [Suspect]
     Active Substance: OCTREOTIDE ACETATE
     Dosage: 30 MG, ONCE IN EVERY 3 WEEKS
     Route: 030
     Dates: end: 20150622

REACTIONS (33)
  - Blood pressure increased [Unknown]
  - Bronchitis [Unknown]
  - Respiration abnormal [Unknown]
  - Oedema peripheral [Unknown]
  - Nasal congestion [Unknown]
  - Chronic obstructive pulmonary disease [Unknown]
  - Oxygen saturation decreased [Unknown]
  - Burning sensation [Unknown]
  - Lethargy [Unknown]
  - Speech disorder [Unknown]
  - Rhinorrhoea [Unknown]
  - Death [Fatal]
  - Nasopharyngitis [Unknown]
  - Paraesthesia [Unknown]
  - Dizziness [Unknown]
  - Flatulence [Unknown]
  - Asthenia [Unknown]
  - Cough [Unknown]
  - Pneumonia [Unknown]
  - Dyspnoea [Unknown]
  - Epistaxis [Unknown]
  - Hypotension [Unknown]
  - Crohn^s disease [Unknown]
  - Rales [Unknown]
  - Blood creatinine increased [Unknown]
  - Injection site mass [Recovered/Resolved]
  - Weight decreased [Unknown]
  - Peripheral swelling [Unknown]
  - Macule [Unknown]
  - Diarrhoea [Not Recovered/Not Resolved]
  - Glucose tolerance impaired [Unknown]
  - Injection site pain [Recovered/Resolved]
  - Hypersensitivity [Unknown]

NARRATIVE: CASE EVENT DATE: 20121026
